FAERS Safety Report 6286463-8 (Version None)
Quarter: 2009Q3

REPORT INFORMATION
  Report Type: 
  Country: None (occurrence: None)
  Receive Date: 20090728
  Receipt Date: 20090721
  Transmission Date: 20100115
  Serious: Yes (Life-Threatening, Hospitalization)
  Sender: FDA-Public Use
  Company Number: B0583693A

PATIENT
  Sex: Female
  Weight: 45 kg

DRUGS (3)
  1. ARIXTRA [Suspect]
     Indication: THROMBOSIS PROPHYLAXIS
     Dosage: 2.5MG PER DAY
     Route: 058
     Dates: start: 20090604, end: 20090605
  2. LEPETAN [Concomitant]
     Indication: PAIN
     Route: 058
     Dates: start: 20090604, end: 20090605
  3. CEFMETAZON [Concomitant]
     Indication: INFECTION PROPHYLAXIS
     Dosage: 3G PER DAY
     Route: 058
     Dates: start: 20090604, end: 20090605

REACTIONS (17)
  - ALANINE AMINOTRANSFERASE INCREASED [None]
  - ASPARTATE AMINOTRANSFERASE INCREASED [None]
  - BLOOD ALBUMIN DECREASED [None]
  - BLOOD ALKALINE PHOSPHATASE INCREASED [None]
  - BLOOD AMYLASE INCREASED [None]
  - BLOOD CREATINE PHOSPHOKINASE INCREASED [None]
  - BLOOD CREATININE INCREASED [None]
  - BLOOD LACTATE DEHYDROGENASE INCREASED [None]
  - BLOOD UREA INCREASED [None]
  - GAMMA-GLUTAMYLTRANSFERASE INCREASED [None]
  - HAEMOGLOBIN DECREASED [None]
  - HEPATIC HAEMATOMA [None]
  - HEPATIC HAEMORRHAGE [None]
  - HEPATIC RUPTURE [None]
  - PLEURAL EFFUSION [None]
  - PROTEIN TOTAL DECREASED [None]
  - TRAUMATIC LIVER INJURY [None]
